FAERS Safety Report 7046013-5 (Version None)
Quarter: 2010Q4

REPORT INFORMATION
  Report Type: 
  Country: None (occurrence: None)
  Receive Date: 20101014
  Receipt Date: 20101004
  Transmission Date: 20110411
  Serious: Yes (Hospitalization, Other)
  Sender: FDA-Public Use
  Company Number: US-RB-000549-10

PATIENT
  Age: 56 Year
  Sex: Male

DRUGS (9)
  1. SUBOXONE TABLET [Suspect]
     Indication: DRUG DEPENDENCE
     Route: 060
     Dates: start: 20090101, end: 20100401
  2. SUBOXONE TABLET [Suspect]
     Indication: VERTIGO
     Route: 060
     Dates: start: 20100401, end: 20100101
  3. SUBOXONE TABLET [Suspect]
     Route: 060
     Dates: start: 20100101, end: 20100101
  4. SUBOXONE TABLET [Suspect]
     Route: 060
     Dates: start: 20100101
  5. SUBOXONE TABLET [Suspect]
     Dosage: DOSAGE UNKNOWN AT THIS TIME
  6. IBUPROFEN [Suspect]
     Indication: MUSCULOSKELETAL PAIN
     Dosage: DOSING DETAILS UNKNOWN
     Route: 065
     Dates: start: 20091101, end: 20100201
  7. LITHIUM [Concomitant]
     Indication: BIPOLAR DISORDER
     Dosage: DOSING DETAILS UNKNOWN
     Route: 065
  8. CITALOPRAM HYDROBROMIDE [Concomitant]
     Indication: DEPRESSION
     Dosage: UNKNOWN DOSING DETAILS
     Route: 065
  9. DAPSONE [Concomitant]
     Indication: COELIAC DISEASE
     Dosage: DOSING DETAILS UNKNOWN
     Route: 065

REACTIONS (16)
  - ACCIDENT [None]
  - ANXIETY [None]
  - DEPRESSION [None]
  - DIZZINESS [None]
  - DRUG WITHDRAWAL SYNDROME [None]
  - FALL [None]
  - GASTROINTESTINAL HAEMORRHAGE [None]
  - HYPERHIDROSIS [None]
  - MALAISE [None]
  - PAIN [None]
  - PANIC ATTACK [None]
  - ROTATOR CUFF SYNDROME [None]
  - STRABISMUS [None]
  - TINNITUS [None]
  - VERTIGO [None]
  - VISION BLURRED [None]
